FAERS Safety Report 12577928 (Version 1)
Quarter: 2016Q3

REPORT INFORMATION
  Report Type: Spontaneous
  Country: US (occurrence: None)
  Receive Date: 20160720
  Receipt Date: 20160720
  Transmission Date: 20161109
  Serious: No
  Sender: FDA-Public Use
  Company Number: None

PATIENT
  Age: 18 Year
  Sex: Female

DRUGS (8)
  1. LACTULOSE. [Concomitant]
     Active Substance: LACTULOSE
  2. SODIUM CHLORIDE. [Concomitant]
     Active Substance: SODIUM CHLORIDE
  3. ADVAIR HFA [Concomitant]
     Active Substance: FLUTICASONE PROPIONATE\SALMETEROL XINAFOATE
  4. PROVENTIL [Concomitant]
     Active Substance: ALBUTEROL
  5. TOBI PODHALER [Suspect]
     Active Substance: TOBRAMYCIN
     Indication: CYSTIC FIBROSIS
     Dosage: 28MG X 4 BID INHALAT
     Route: 055
     Dates: start: 20131204
  6. ZUPREXA [Concomitant]
  7. PULMOZYME [Suspect]
     Active Substance: DORNASE ALFA
     Indication: CYSTIC FIBROSIS
     Dosage: 1MG/1ML QD INHALATION
     Route: 055
     Dates: start: 20130702
  8. NEXIUM [Concomitant]
     Active Substance: ESOMEPRAZOLE MAGNESIUM

REACTIONS (2)
  - Condition aggravated [None]
  - Cystic fibrosis [None]

NARRATIVE: CASE EVENT DATE: 20160628
